FAERS Safety Report 8905910 (Version 1)
Quarter: 2012Q4

REPORT INFORMATION
  Report Type: 
  Country: US (occurrence: US)
  Receive Date: 20121112
  Receipt Date: 20121112
  Transmission Date: 20130627
  Serious: No
  Sender: FDA-Public Use
  Company Number: US-PFIZER INC-2012271900

PATIENT
  Age: 51 Year
  Sex: Female
  Weight: 63.49 kg

DRUGS (4)
  1. CHANTIX [Suspect]
     Indication: SMOKING CESSATION THERAPY
     Dosage: 0.5 mg, 2x/day
     Route: 048
     Dates: start: 201209
  2. CHANTIX [Suspect]
     Dosage: 1 mg, 2x/day
     Route: 048
  3. NORCO [Concomitant]
     Indication: BACK PAIN
     Dosage: UNK
  4. NORCO [Concomitant]
     Indication: PAIN IN ARM

REACTIONS (4)
  - Weight increased [Unknown]
  - Decreased appetite [Unknown]
  - Nausea [Not Recovered/Not Resolved]
  - Somnolence [Unknown]
